FAERS Safety Report 12284508 (Version 1)
Quarter: 2016Q2

REPORT INFORMATION
  Report Type: Spontaneous
  Country: US (occurrence: US)
  Receive Date: 20160420
  Receipt Date: 20160420
  Transmission Date: 20160815
  Serious: No
  Sender: FDA-Public Use
  Company Number: US-TEVA-553521USA

PATIENT
  Sex: Male

DRUGS (3)
  1. JALYN [Concomitant]
     Active Substance: DUTASTERIDE\TAMSULOSIN HYDROCHLORIDE
  2. JALYN [Concomitant]
     Active Substance: DUTASTERIDE\TAMSULOSIN HYDROCHLORIDE
  3. NIACIN ER [Suspect]
     Active Substance: NIACIN
     Dosage: 500 MILLIGRAM DAILY;
     Route: 065
     Dates: start: 2013

REACTIONS (5)
  - Balance disorder [Recovered/Resolved]
  - Rash erythematous [Unknown]
  - Burning sensation [Recovered/Resolved]
  - Hot flush [Unknown]
  - Adverse event [Recovered/Resolved]
